FAERS Safety Report 4756197-7 (Version None)
Quarter: 2005Q3

REPORT INFORMATION
  Report Type: 
  Country: None (occurrence: None)
  Receive Date: 20050830
  Receipt Date: 20050503
  Transmission Date: 20060218
  Serious: Yes (Other)
  Sender: FDA-Public Use
  Company Number: US-GLAXOSMITHKLINE-A0557108A

PATIENT
  Age: 19 Year
  Sex: Male

DRUGS (3)
  1. WELLBUTRIN [Suspect]
     Dosage: 150MG PER DAY
     Route: 048
  2. DEPAKOTE [Concomitant]
  3. SEROQUEL [Concomitant]

REACTIONS (1)
  - MANIA [None]
